FAERS Safety Report 15662818 (Version 2)
Quarter: 2019Q1

REPORT INFORMATION
  Report Type: Spontaneous
  Country: US (occurrence: US)
  Receive Date: 20181127
  Receipt Date: 20190121
  Transmission Date: 20190417
  Serious: Yes (Other)
  Sender: FDA-Public Use
  Company Number: US-SA-2018SA175028

PATIENT
  Sex: Female

DRUGS (2)
  1. TAXOTERE [Suspect]
     Active Substance: DOCETAXEL
     Dosage: 116 MG, UNK
     Route: 042
     Dates: start: 20100901, end: 20100901
  2. TAXOTERE [Suspect]
     Active Substance: DOCETAXEL
     Dosage: 116 MG, UNK
     Route: 042
     Dates: start: 20100512, end: 20100512

REACTIONS (1)
  - Alopecia [Not Recovered/Not Resolved]
